FAERS Safety Report 6896766-1 (Version None)
Quarter: 2010Q3

REPORT INFORMATION
  Report Type: 
  Country: None (occurrence: None)
  Receive Date: 20100802
  Receipt Date: 20100726
  Transmission Date: 20110219
  Serious: Yes (Hospitalization)
  Sender: FDA-Public Use
  Company Number: FR-GILEAD-2010-0030662

PATIENT
  Sex: Male

DRUGS (6)
  1. ATRIPLA [Suspect]
     Indication: HIV INFECTION
     Route: 048
     Dates: start: 20100202
  2. CRESTOR [Suspect]
     Indication: HYPERCHOLESTEROLAEMIA
     Route: 048
     Dates: start: 20080129
  3. BIPRETERAX [Suspect]
     Indication: HYPERTENSION
     Route: 048
  4. TRUVADA [Concomitant]
     Indication: HIV INFECTION
     Dates: start: 20060301, end: 20100202
  5. SUSTIVA [Concomitant]
     Indication: HIV INFECTION
     Dates: start: 20060301, end: 20100202
  6. ASPIRIN [Concomitant]

REACTIONS (1)
  - NEPHROLITHIASIS [None]
